FAERS Safety Report 5345902-7 (Version None)
Quarter: 2007Q2

REPORT INFORMATION
  Report Type: 
  Country: None (occurrence: None)
  Receive Date: 20070605
  Receipt Date: 20070530
  Transmission Date: 20071010
  Serious: Yes (Other)
  Sender: FDA-Public Use
  Company Number: A0652136A

PATIENT
  Age: 61 Year
  Sex: Female

DRUGS (9)
  1. TYKERB [Suspect]
     Indication: BREAST CANCER
     Dosage: 5TAB PER DAY
     Route: 048
     Dates: start: 20070520
  2. XELODA [Suspect]
     Indication: DRUG USE FOR UNKNOWN INDICATION
  3. LUMIGAN [Concomitant]
  4. ALPHAGAN [Concomitant]
  5. PRINIVIL [Concomitant]
  6. INSULIN [Concomitant]
  7. PREVACID [Concomitant]
  8. ZOFRAN [Concomitant]
  9. DILAUDID [Concomitant]

REACTIONS (2)
  - PALMAR-PLANTAR ERYTHRODYSAESTHESIA SYNDROME [None]
  - PRURITUS [None]
